FAERS Safety Report 4898127-3 (Version None)
Quarter: 2006Q1

REPORT INFORMATION
  Report Type: 
  Country: None (occurrence: None)
  Receive Date: 20060130
  Receipt Date: 20060116
  Transmission Date: 20060701
  Serious: Yes (Death, Hospitalization)
  Sender: FDA-Public Use
  Company Number: A-US2005-11270

PATIENT
  Age: 25 Year
  Sex: Female

DRUGS (8)
  1. TRACLEER [Suspect]
     Indication: PULMONARY HYPERTENSION
     Dosage: SEE IMAGE
     Route: 048
     Dates: start: 20041101, end: 20050101
  2. TRACLEER [Suspect]
     Indication: PULMONARY HYPERTENSION
     Dosage: SEE IMAGE
     Route: 048
     Dates: start: 20050101
  3. HYDROCORTISONE [Concomitant]
  4. LASIX [Concomitant]
  5. SYNTHROID [Concomitant]
  6. DDAVP [Concomitant]
  7. PREVACID [Concomitant]
  8. CALCIUM (CALCIUM) [Concomitant]

REACTIONS (9)
  - ASPIRATION BRONCHIAL [None]
  - BACTERIAL SEPSIS [None]
  - DIALYSIS [None]
  - DRUG TOXICITY [None]
  - FUNGAL SEPSIS [None]
  - HEPATIC FAILURE [None]
  - RENAL FAILURE [None]
  - RESPIRATORY FAILURE [None]
  - RIGHT VENTRICULAR FAILURE [None]
